FAERS Safety Report 8848057 (Version 1)
Quarter: 2012Q4

REPORT INFORMATION
  Report Type: 
  Country: ES (occurrence: ES)
  Receive Date: 20121018
  Receipt Date: 20121018
  Transmission Date: 20130627
  Serious: Yes (Hospitalization)
  Sender: FDA-Public Use
  Company Number: ES-SHIRE-SPV1-2012-00913

PATIENT
  Age: 57 Year
  Sex: Male

DRUGS (5)
  1. XAGRID [Suspect]
     Indication: ESSENTIAL THROMBOCYTHAEMIA
     Dosage: 0.5 mg, 1x/day:qd
     Dates: start: 200611
  2. XAGRID [Suspect]
     Dosage: 2 g, 1x/day:qd
  3. HYDROXYUREA [Concomitant]
     Indication: ESSENTIAL THROMBOCYTHAEMIA
     Dosage: 1 DF, 1x/day:qd
     Dates: start: 200601
  4. HYDROXYUREA [Concomitant]
     Dosage: 2 g, 1x/day:qd
  5. HYDROXYUREA [Concomitant]
     Dosage: 3 DF, 1x/day:qd

REACTIONS (3)
  - Bladder diverticulum [Recovered/Resolved]
  - Umbilical hernia [Recovered/Resolved]
  - Haematuria [Recovered/Resolved]
